FAERS Safety Report 9421436 (Version 1)
Quarter: 2013Q3

REPORT INFORMATION
  Report Type: Spontaneous
  Country: BR (occurrence: BR)
  Receive Date: 20130726
  Receipt Date: 20130726
  Transmission Date: 20140515
  Serious: Yes (Other)
  Sender: FDA-Public Use
  Company Number: BR-PFIZER INC-2013212781

PATIENT
  Age: 70 Year
  Sex: Female

DRUGS (5)
  1. XALATAN [Suspect]
     Indication: GLAUCOMA
     Dosage: 1 DROP IN EACH EYE, 1X/DAY
     Route: 047
     Dates: start: 20080413
  2. AMARYL [Concomitant]
     Indication: DIABETES MELLITUS
     Dosage: 1 UNIT OF UNSPECIFIED DOSAGE, 1X/DAY
     Dates: start: 1983
  3. DIOVAN (VALSARTAN) [Concomitant]
     Indication: HYPERTENSION
     Dosage: 1 UNIT OF UNSPECIFIED DOSAGE, 1X/DAY
  4. GALVUS MET [Concomitant]
     Indication: DIABETES MELLITUS
     Dosage: 1 UNIT OF UNSPECIFIED DOSAGE, 2X/DAY
     Dates: start: 1983
  5. LIPITOR [Concomitant]
     Indication: BLOOD CHOLESTEROL
     Dosage: 1 UNIT (10MG), 1X/DAY
     Dates: start: 20130128

REACTIONS (3)
  - Intraocular pressure increased [Unknown]
  - Cataract [Unknown]
  - Narrow anterior chamber angle [Unknown]
